FAERS Safety Report 21547021 (Version 1)
Quarter: 2022Q4

REPORT INFORMATION
  Report Type: Report from Study
  Country: CO (occurrence: CO)
  Receive Date: 20221103
  Receipt Date: 20221103
  Transmission Date: 20230112
  Serious: Yes (Other)
  Sender: FDA-Public Use
  Company Number: CO-BAYER-2022A151705

PATIENT
  Age: 68 Year
  Sex: Male

DRUGS (3)
  1. EYLEA [Suspect]
     Active Substance: AFLIBERCEPT
     Indication: Retinal vein occlusion
     Dosage: UNK UNK, ONCE, BOTH EYES, SOLUTION FOR INJECTION
     Dates: start: 20220118, end: 20220118
  2. EYLEA [Suspect]
     Active Substance: AFLIBERCEPT
     Dosage: UNK UNK, ONCE, BOTH EYES, SOLUTION FOR INJECTION
     Dates: start: 20220421, end: 20220421
  3. EYLEA [Suspect]
     Active Substance: AFLIBERCEPT
     Dosage: UNK UNK, ONCE, BOTH EYES, SOLUTION FOR INJECTION
     Dates: start: 20220526, end: 20220526

REACTIONS (1)
  - Retinal disorder [Unknown]

NARRATIVE: CASE EVENT DATE: 20221026
